FAERS Safety Report 16335607 (Version 1)
Quarter: 2019Q2

REPORT INFORMATION
  Report Type: Spontaneous
  Country: GB (occurrence: GB)
  Receive Date: 20190521
  Receipt Date: 20190521
  Transmission Date: 20190711
  Serious: Yes (Other)
  Sender: FDA-Public Use
  Company Number: GB-TEVA-2019-GB-1051875

PATIENT
  Age: 85 Year
  Sex: Male
  Weight: 68 kg

DRUGS (16)
  1. LOSARTAN. [Concomitant]
     Active Substance: LOSARTAN
     Dosage: 1 DOSAGE FORMS DAILY;
     Dates: start: 20181213
  2. HYPROMELLOSE [Concomitant]
     Active Substance: HYPROMELLOSES
     Dosage: 4 GTT DAILY; BOTH EYES.
     Dates: start: 20170407
  3. LOPERAMIDE [Concomitant]
     Active Substance: LOPERAMIDE
     Dosage: FOUR TIMES A DAY
     Dates: start: 20171010
  4. LANSOPRAZOLE. [Suspect]
     Active Substance: LANSOPRAZOLE
     Dates: start: 20161230, end: 20190214
  5. METOCLOPRAMIDE. [Concomitant]
     Active Substance: METOCLOPRAMIDE
     Dosage: 3 DOSAGE FORMS DAILY;
     Dates: start: 20190402, end: 20190407
  6. PROCHLORPERAZINE. [Concomitant]
     Active Substance: PROCHLORPERAZINE
     Dosage: 3 DOSAGE FORMS DAILY;
     Dates: start: 20190402
  7. INDAPAMIDE. [Concomitant]
     Active Substance: INDAPAMIDE
     Dosage: 1 DOSAGE FORMS DAILY; EACH MORNING.
     Dates: start: 20181213, end: 20190214
  8. LANSOPRAZOLE. [Suspect]
     Active Substance: LANSOPRAZOLE
     Dates: start: 20190416
  9. TAMSULOSIN HYDROCHLORIDE. [Concomitant]
     Active Substance: TAMSULOSIN HYDROCHLORIDE
     Dosage: 1 DOSAGE FORMS DAILY;
     Dates: start: 20170814
  10. RANITIDINE. [Concomitant]
     Active Substance: RANITIDINE
     Dosage: 1 DOSAGE FORMS DAILY; AT NIGHT.
     Dates: start: 20190416
  11. ACETYLSALICYLIC ACID [Concomitant]
     Active Substance: ASPIRIN
     Dosage: 1 DOSAGE FORMS DAILY; IN WATER.
     Dates: start: 20181213
  12. QUININE [Concomitant]
     Active Substance: QUININE
     Dosage: 1 DOSAGE FORMS DAILY; AT NIGHT.
     Dates: start: 20181217, end: 20190416
  13. CAPSAICIN. [Concomitant]
     Active Substance: CAPSAICIN
     Dosage: 2 DOSAGE FORMS DAILY; APPLY.
     Dates: start: 20161230
  14. ATORVASTATIN [Concomitant]
     Active Substance: ATORVASTATIN
     Dosage: 1 DOSAGE FORMS DAILY; AT NIGHT.
     Dates: start: 20181213
  15. HUMULIN M3 [Concomitant]
     Active Substance: INSULIN HUMAN
     Dosage: USE AS DIRECTED.
     Dates: start: 20181213
  16. FORTISIP [Concomitant]
     Active Substance: CARBOHYDRATES\FATTY ACIDS\MINERALS\PROTEIN\VITAMINS
     Dosage: 2 DOSAGE FORMS DAILY; MIXED FLAVOURS.
     Dates: start: 20190404

REACTIONS (2)
  - Ulcer [Unknown]
  - Swollen tongue [Recovered/Resolved]

NARRATIVE: CASE EVENT DATE: 20190416
